FAERS Safety Report 21143601 (Version 1)
Quarter: 2022Q3

REPORT INFORMATION
  Report Type: Spontaneous
  Country: US (occurrence: None)
  Receive Date: 20220728
  Receipt Date: 20220728
  Transmission Date: 20221026
  Serious: No
  Sender: FDA-Public Use
  Company Number: None

PATIENT
  Age: 68 Year
  Sex: Male
  Weight: 110.7 kg

DRUGS (8)
  1. REVLIMID [Suspect]
     Active Substance: LENALIDOMIDE
     Indication: Plasma cell myeloma
     Dosage: OTHER FREQUENCY : 21 ON/ 7 OFF;?
     Route: 048
     Dates: start: 20220304
  2. ACYCLOVIR [Concomitant]
     Active Substance: ACYCLOVIR
  3. ALLOPURINOL [Concomitant]
     Active Substance: ALLOPURINOL
  4. DEXAMETHASONE [Concomitant]
     Active Substance: DEXAMETHASONE
  5. FUROSEMIDE [Concomitant]
     Active Substance: FUROSEMIDE
  6. hydrochlorothiazide 25 mg tablet [Concomitant]
  7. LISINOPRIL [Concomitant]
     Active Substance: LISINOPRIL
  8. simvastatin 40 mg tablet [Concomitant]

REACTIONS (5)
  - Peripheral swelling [None]
  - Pain [None]
  - Fatigue [None]
  - Therapy interrupted [None]
  - Drug intolerance [None]

NARRATIVE: CASE EVENT DATE: 20220728
